FAERS Safety Report 18267775 (Version 3)
Quarter: 2020Q4

REPORT INFORMATION
  Report Type: Spontaneous
  Country: US (occurrence: US)
  Receive Date: 20200915
  Receipt Date: 20201117
  Transmission Date: 20210113
  Serious: No
  Sender: FDA-Public Use
  Company Number: US-ASTRAZENECA-2020SF16267

PATIENT
  Age: 76 Year
  Sex: Male
  Weight: 105.7 kg

DRUGS (2)
  1. INSULIN [Concomitant]
     Active Substance: INSULIN NOS
     Route: 065
  2. BYDUREON BCISE [Suspect]
     Active Substance: EXENATIDE
     Indication: DIABETES MELLITUS
     Route: 058
     Dates: start: 202005

REACTIONS (4)
  - Off label use [Not Recovered/Not Resolved]
  - Incorrect dose administered by device [Unknown]
  - Device failure [Recovered/Resolved]
  - Needle track marks [Unknown]

NARRATIVE: CASE EVENT DATE: 202005
